FAERS Safety Report 9742216 (Version 4)
Quarter: 2014Q2

REPORT INFORMATION
  Report Type: Report from Study
  Country: FR (occurrence: FR)
  Receive Date: 20131210
  Receipt Date: 20140423
  Transmission Date: 20141212
  Serious: Yes (Hospitalization, Other)
  Sender: FDA-Public Use
  Company Number: FR-ASTELLAS-2013EU010799

PATIENT
  Age: 40 Year
  Sex: Male

DRUGS (3)
  1. TACROLIMUS [Suspect]
     Indication: RENAL TRANSPLANT
     Dosage: UNK, UNKNOWN FREQ.
     Route: 065
     Dates: start: 20131022
  2. MYFORTIC [Suspect]
     Indication: RENAL TRANSPLANT
     Route: 048
     Dates: start: 20131121, end: 20131127
  3. CORTANCYL [Suspect]
     Indication: RENAL TRANSPLANT
     Route: 065
     Dates: start: 20131022

REACTIONS (6)
  - Alcoholic pancreatitis [Recovered/Resolved]
  - Superinfection [Recovered/Resolved]
  - Jejunostomy [Recovered/Resolved]
  - Drain placement [Recovered/Resolved]
  - Renal failure acute [Recovered/Resolved]
  - Overdose [Recovered/Resolved]
